FAERS Safety Report 7909183-X (Version None)
Quarter: 2011Q4

REPORT INFORMATION
  Report Type: 
  Country: None (occurrence: None)
  Receive Date: 20111111
  Receipt Date: 20110606
  Transmission Date: 20120403
  Serious: No
  Sender: FDA-Public Use
  Company Number: US-GLAXOSMITHKLINE-A0931370A

PATIENT
  Age: 3 Year
  Sex: Male
  Weight: 15 kg

DRUGS (1)
  1. COREG [Suspect]
     Indication: CARDIAC FAILURE
     Dosage: .35MG UNKNOWN
     Route: 048

REACTIONS (6)
  - MOOD ALTERED [None]
  - FATIGUE [None]
  - BLOOD PRESSURE DECREASED [None]
  - OFF LABEL USE [None]
  - INCORRECT DOSE ADMINISTERED [None]
  - LETHARGY [None]
